FAERS Safety Report 7749315-X (Version None)
Quarter: 2011Q3

REPORT INFORMATION
  Report Type: 
  Country: None (occurrence: None)
  Receive Date: 20110914
  Receipt Date: 20100415
  Transmission Date: 20111222
  Serious: No
  Sender: FDA-Public Use
  Company Number: US-BAYER-201020729NA

PATIENT
  Age: 29 Year
  Sex: Female

DRUGS (2)
  1. MIRENA [Suspect]
     Indication: CONTRACEPTION
     Dosage: 20 ?G/D, CONT
     Route: 015
     Dates: start: 20090728, end: 20100410
  2. MIRENA [Suspect]
     Indication: MENORRHAGIA

REACTIONS (4)
  - MEDICAL DEVICE COMPLICATION [None]
  - MENORRHAGIA [None]
  - DEVICE EXPULSION [None]
  - DEVICE DISLOCATION [None]
